FAERS Safety Report 9786242 (Version 1)
Quarter: 2013Q4

REPORT INFORMATION
  Report Type: Spontaneous
  Country: US (occurrence: US)
  Receive Date: 20131227
  Receipt Date: 20131227
  Transmission Date: 20140711
  Serious: Yes (Other)
  Sender: FDA-Public Use
  Company Number: US-PFIZER INC-2013369611

PATIENT
  Age: 55 Year
  Sex: Female
  Weight: 64.4 kg

DRUGS (4)
  1. NEURONTIN [Suspect]
     Indication: PAIN
     Dosage: 100 MG, 1X/DAY
     Route: 048
     Dates: start: 20131213, end: 201312
  2. NEURONTIN [Suspect]
     Indication: HYPOAESTHESIA
     Dosage: 200 MG, 1X/DAY
     Dates: start: 201312, end: 201312
  3. NEURONTIN [Suspect]
     Indication: PARAESTHESIA
     Dosage: 300 MG, 1X/DAY
     Dates: start: 201312, end: 20131222
  4. DIAZEPAM [Concomitant]
     Dosage: 5 MG, 2X/DAY

REACTIONS (4)
  - Off label use [Unknown]
  - Haemorrhage [Not Recovered/Not Resolved]
  - Asthenia [Unknown]
  - Pollakiuria [Unknown]
